FAERS Safety Report 8221107-7 (Version None)
Quarter: 2012Q1

REPORT INFORMATION
  Report Type: 
  Country: None (occurrence: None)
  Receive Date: 20120320
  Receipt Date: 20120314
  Transmission Date: 20120608
  Serious: Yes (Hospitalization)
  Sender: FDA-Public Use
  Company Number: US-INCYTE CORPORATION-2012IN000395

PATIENT
  Sex: Male

DRUGS (8)
  1. CIPROFLOXACIN [Concomitant]
     Dosage: UNK
  2. JAKAFI [Suspect]
     Indication: MYELOFIBROSIS
     Dosage: 20 MG, BID
     Route: 048
     Dates: end: 20120301
  3. DOXAZOSIN MESYLATE [Concomitant]
     Dosage: 4 MG, QD
     Route: 048
  4. JAKAFI [Suspect]
     Dosage: 20 MG, QD
     Route: 048
     Dates: start: 20120301, end: 20120313
  5. JAKAFI [Suspect]
     Dosage: 20 MG, BID
     Route: 048
     Dates: start: 20120314
  6. LASIX [Concomitant]
     Dosage: 40 MG, QD
     Route: 048
  7. ALLOPURINOL [Concomitant]
     Dosage: 300 MG, QD
     Route: 048
  8. LISINOPRIL [Concomitant]
     Dosage: 5 MG, QD

REACTIONS (1)
  - NEPHROLITHIASIS [None]
